FAERS Safety Report 14037058 (Version 2)
Quarter: 2017Q4

REPORT INFORMATION
  Report Type: Report from Study
  Country: FR (occurrence: FR)
  Receive Date: 20171004
  Receipt Date: 20171007
  Transmission Date: 20180321
  Serious: Yes (Other)
  Sender: FDA-Public Use
  Company Number: FR-ROCHE-1997499

PATIENT
  Age: 54 Year
  Sex: Female

DRUGS (6)
  1. OMEPRAZOLE. [Concomitant]
     Active Substance: OMEPRAZOLE
  2. PEGYLATED LIPOSOMAL DOXORUBICIN [Suspect]
     Active Substance: DOXORUBICIN
     Indication: OVARIAN CANCER
     Dosage: LAST DOSE RECEIVED ON 20/JUL/2017 AND PERMANENTLY STOPPED
     Route: 042
     Dates: start: 20170217
  3. ZOPHREN [Concomitant]
     Active Substance: ONDANSETRON
  4. CARBOPLATIN. [Suspect]
     Active Substance: CARBOPLATIN
     Indication: OVARIAN CANCER
     Dosage: TO ACHIEVE AREA UNDER THE CURVE (AUC) 5 DAY 1?LAST DOSE RECEIVED ON 20/JUL/2017 AND PERMANENTLY STOP
     Route: 042
     Dates: start: 20170217
  5. BEVACIZUMAB. [Suspect]
     Active Substance: BEVACIZUMAB
     Indication: OVARIAN CANCER
     Dosage: LAST DOSE RECEIVED ON 13/SEP/2017 AND TEMPORARILY STOPPED
     Route: 042
     Dates: start: 20170217
  6. ATEZOLIZUMAB. [Suspect]
     Active Substance: ATEZOLIZUMAB
     Indication: OVARIAN CANCER
     Dosage: LAST DOSE RECEIVED ON 13/SEP/2017 AND TEMPORARILY STOPPED
     Route: 042
     Dates: start: 20170217

REACTIONS (1)
  - Ventricular failure [Not Recovered/Not Resolved]

NARRATIVE: CASE EVENT DATE: 20170824
